FAERS Safety Report 4988593-7 (Version None)
Quarter: 2006Q2

REPORT INFORMATION
  Report Type: 
  Country: None (occurrence: None)
  Receive Date: 20060426
  Receipt Date: 20060413
  Transmission Date: 20061013
  Serious: Yes (Other)
  Sender: FDA-Public Use
  Company Number: 02100-JPN-06-0166

PATIENT
  Age: 70 Year
  Sex: Male

DRUGS (7)
  1. CILOSTAZOL [Suspect]
     Indication: CEREBRAL INFARCTION
     Dosage: ORAL
     Route: 048
     Dates: start: 20040101, end: 20051026
  2. TICLOPIDINE HYDROCHLORIDE [Concomitant]
  3. TRICHLORMETHIAZIDE [Concomitant]
  4. LOSARTAN POTASSIUM [Concomitant]
  5. PRAVASTATIN SODIUM [Concomitant]
  6. DILAZEP HYDROCHLORIDE [Concomitant]
  7. AMLODIPINE BESYLATE [Concomitant]

REACTIONS (2)
  - LYMPHOCYTE STIMULATION TEST POSITIVE [None]
  - PNEUMONITIS [None]
